FAERS Safety Report 17289997 (Version 1)
Quarter: 2020Q1

REPORT INFORMATION
  Report Type: Spontaneous
  Country: US (occurrence: US)
  Receive Date: 20200120
  Receipt Date: 20200120
  Transmission Date: 20200409
  Serious: No
  Sender: FDA-Public Use
  Company Number: US-TARO-2019TAR00440

PATIENT
  Age: 71 Year
  Sex: Female
  Weight: 63.04 kg

DRUGS (7)
  1. IRON [Concomitant]
     Active Substance: IRON
  2. HYDROCORTISONE. [Concomitant]
     Active Substance: HYDROCORTISONE
  3. CARDIZEM [Concomitant]
     Active Substance: DILTIAZEM HYDROCHLORIDE
  4. ALLEGRA [Concomitant]
     Active Substance: FEXOFENADINE HYDROCHLORIDE
  5. IMVEXXY [Suspect]
     Active Substance: ESTRADIOL
     Dosage: 10 ?G, 2X/WEEK BEFORE BED
     Route: 067
     Dates: start: 201904, end: 201904
  6. NYSTATIN AND TRIAMCINOLONE ACETONIDE [Suspect]
     Active Substance: NYSTATIN\TRIAMCINOLONE ACETONIDE
     Dosage: UNK UNK, 2X/DAY
     Route: 067
     Dates: end: 201904
  7. IMVEXXY [Suspect]
     Active Substance: ESTRADIOL
     Indication: VULVOVAGINAL PRURITUS
     Dosage: 10 ?G, 1X/DAY BEFORE BED
     Route: 067
     Dates: start: 201904, end: 201904

REACTIONS (2)
  - Joint swelling [Not Recovered/Not Resolved]
  - Breast tenderness [Recovering/Resolving]

NARRATIVE: CASE EVENT DATE: 201904
